FAERS Safety Report 13998169 (Version 1)
Quarter: 2017Q3

REPORT INFORMATION
  Report Type: Spontaneous
  Country: FR (occurrence: FR)
  Receive Date: 20170921
  Receipt Date: 20170921
  Transmission Date: 20171128
  Serious: Yes (Other)
  Sender: FDA-Public Use
  Company Number: FR-MERCK KGAA-2027195

PATIENT

DRUGS (3)
  1. NOVOTHYROX [Suspect]
     Active Substance: LEVOTHYROXINE SODIUM
  2. NOVOTHYROX [Suspect]
     Active Substance: LEVOTHYROXINE SODIUM
     Indication: PRODUCT USED FOR UNKNOWN INDICATION
  3. NOVOTHYROX [Suspect]
     Active Substance: LEVOTHYROXINE SODIUM
     Dates: start: 201708

REACTIONS (4)
  - Blood thyroid stimulating hormone decreased [Not Recovered/Not Resolved]
  - Fatigue [Unknown]
  - Vertigo [Unknown]
  - Sleep disorder [Unknown]

NARRATIVE: CASE EVENT DATE: 201706
